FAERS Safety Report 6030759-1 (Version None)
Quarter: 2009Q1

REPORT INFORMATION
  Report Type: 
  Country: None (occurrence: None)
  Receive Date: 20090107
  Receipt Date: 20081226
  Transmission Date: 20090719
  Serious: Yes (Hospitalization)
  Sender: FDA-Public Use
  Company Number: JP-GENENTECH-274905

PATIENT
  Sex: Female

DRUGS (5)
  1. AVASTIN [Suspect]
     Indication: COLON CANCER METASTATIC
     Dosage: 5 MG/KG, QD
     Route: 041
     Dates: start: 20080806, end: 20080930
  2. ELPLAT [Suspect]
     Indication: COLON CANCER METASTATIC
     Dosage: 127 MG, QD
     Route: 041
     Dates: start: 20080806
  3. FLUOROURACIL [Suspect]
     Indication: COLON CANCER METASTATIC
     Dosage: 600 MG, QD
     Route: 041
     Dates: start: 20080806
  4. CALCIUM LEVOFOLINATE [Suspect]
     Indication: COLON CANCER METASTATIC
     Dosage: 300 MG, QD
     Route: 041
     Dates: start: 20080806
  5. LENDORMIN [Suspect]
     Indication: INSOMNIA
     Dosage: 0.25 MG, QD
     Route: 048
     Dates: start: 20080811, end: 20080817

REACTIONS (1)
  - HEPATIC ENZYME INCREASED [None]
